FAERS Safety Report 7106345-9 (Version None)
Quarter: 2010Q4

REPORT INFORMATION
  Report Type: 
  Country: None (occurrence: None)
  Receive Date: 20101116
  Receipt Date: 20101020
  Transmission Date: 20110411
  Serious: No
  Sender: FDA-Public Use
  Company Number: US-JNJFOC-20101006140

PATIENT
  Age: 4 Decade
  Sex: Male

DRUGS (3)
  1. INVEGA [Suspect]
     Indication: SCHIZOPHRENIA
     Route: 048
  2. ZOLOFT [Concomitant]
     Indication: ILL-DEFINED DISORDER
  3. CLOMIPHENE CITRATE [Concomitant]
     Indication: ILL-DEFINED DISORDER

REACTIONS (2)
  - COGNITIVE DISORDER [None]
  - HYPOKINESIA [None]
